FAERS Safety Report 13741795 (Version 2)
Quarter: 2017Q3

REPORT INFORMATION
  Report Type: Spontaneous
  Country: US (occurrence: US)
  Receive Date: 20170711
  Receipt Date: 20170828
  Transmission Date: 20171127
  Serious: No
  Sender: FDA-Public Use
  Company Number: US-PFIZER INC-2017298553

PATIENT
  Sex: Female

DRUGS (1)
  1. DUAVEE [Suspect]
     Active Substance: BAZEDOXIFENE ACETATE\ESTROGENS, CONJUGATED

REACTIONS (4)
  - Neck pain [Unknown]
  - Muscle spasms [Unknown]
  - Sinus pain [Unknown]
  - Back pain [Unknown]
